FAERS Safety Report 5846174-7 (Version None)
Quarter: 2008Q3

REPORT INFORMATION
  Report Type: 
  Country: None (occurrence: None)
  Receive Date: 20080814
  Receipt Date: 20080804
  Transmission Date: 20090109
  Serious: Yes (Hospitalization)
  Sender: FDA-Public Use
  Company Number: JP-ABBOTT-08P-087-0466892-00

PATIENT
  Age: 85 Year
  Sex: Male
  Weight: 39 kg

DRUGS (2)
  1. LEUPROLIDE ACETATE [Suspect]
     Indication: PROSTATE CANCER STAGE IV
     Route: 058
     Dates: start: 20071022
  2. BICALUTAMIDE [Concomitant]
     Indication: PROSTATE CANCER STAGE IV
     Route: 048

REACTIONS (1)
  - ILEUS [None]
